FAERS Safety Report 7220971-8 (Version None)
Quarter: 2011Q1

REPORT INFORMATION
  Report Type: 
  Country: None (occurrence: None)
  Receive Date: 20110103
  Receipt Date: 20101217
  Transmission Date: 20110831
  Serious: Yes (Other)
  Sender: FDA-Public Use
  Company Number: 2010SP065653

PATIENT
  Age: 15 Year
  Sex: Female

DRUGS (1)
  1. NEXPLANON (ETONOGESTREL /01502301/) [Suspect]
     Indication: CONTRACEPTION
     Dates: start: 20101119, end: 20101124

REACTIONS (4)
  - DEVICE DIFFICULT TO USE [None]
  - IMPLANT SITE INFECTION [None]
  - COMPLICATION OF DEVICE INSERTION [None]
  - DEVICE RELATED INFECTION [None]
